FAERS Safety Report 17960412 (Version 1)
Quarter: 2020Q2

REPORT INFORMATION
  Report Type: Spontaneous
  Country: HR (occurrence: HR)
  Receive Date: 20200630
  Receipt Date: 20200630
  Transmission Date: 20200714
  Serious: Yes (Other)
  Sender: FDA-Public Use
  Company Number: NVSC2020HR178725

PATIENT
  Age: 81 Year
  Sex: Female

DRUGS (1)
  1. AMLOPIN [AMLODIPINE BESILATE] [Suspect]
     Active Substance: AMLODIPINE BESYLATE
     Indication: PRODUCT USED FOR UNKNOWN INDICATION
     Dosage: 220 MG, QD
     Route: 048
     Dates: start: 20200109, end: 20200109

REACTIONS (3)
  - Hypotension [Unknown]
  - Suicide attempt [Unknown]
  - Intentional overdose [Unknown]

NARRATIVE: CASE EVENT DATE: 20200109
